FAERS Safety Report 6643368-8 (Version None)
Quarter: 2010Q1

REPORT INFORMATION
  Report Type: 
  Country: None (occurrence: None)
  Receive Date: 20100319
  Receipt Date: 20100311
  Transmission Date: 20100710
  Serious: Yes (Hospitalization)
  Sender: FDA-Public Use
  Company Number: PHHO2009JP06970

PATIENT
  Sex: Female
  Weight: 61 kg

DRUGS (12)
  1. CERTICAN [Suspect]
     Indication: RENAL TRANSPLANT
     Dosage: 1.5 MG DAILY
     Route: 048
     Dates: start: 20090211, end: 20090414
  2. CERTICAN [Suspect]
     Dosage: 3.0 MG DAILY
     Route: 048
     Dates: start: 20090415
  3. NEORAL [Suspect]
     Indication: RENAL TRANSPLANT
     Dosage: 160 MG DAILY
     Route: 048
  4. DIOVAN [Suspect]
     Indication: HYPERTENSION
     Dosage: 80 MG DAILY
     Route: 048
     Dates: start: 20090527
  5. MEDROL [Suspect]
     Indication: RENAL TRANSPLANT
     Dosage: 4 MG DAILY
     Route: 048
  6. HIRUDOID [Suspect]
     Indication: RASH
     Dosage: UNK
     Dates: start: 20090501
  7. FAMOTIDINE [Concomitant]
     Indication: PROPHYLAXIS AGAINST GASTROINTESTINAL ULCER
     Dosage: 20 MG DAILY
     Route: 048
     Dates: start: 20090313
  8. MAGLAX [Concomitant]
     Indication: CONSTIPATION
     Dosage: 500 MG DAILY
     Route: 048
     Dates: start: 20090310
  9. SODIUM PICOSULFATE [Concomitant]
     Indication: CONSTIPATION
     Dosage: UNK
     Route: 048
     Dates: start: 20090216
  10. DIFFERIN [Concomitant]
     Indication: RASH
     Dosage: UNK
     Dates: start: 20090313
  11. POVIDONE IODINE [Concomitant]
     Indication: INFECTION PROPHYLAXIS
     Dosage: UNK
     Dates: start: 20090203
  12. FUROSEMIDE [Concomitant]
     Indication: ASCITES
     Dosage: 40 MG DAILY
     Route: 048
     Dates: start: 20090429

REACTIONS (7)
  - ASCITES [None]
  - BLOOD CREATININE INCREASED [None]
  - CONSTIPATION [None]
  - HYPERTENSION [None]
  - KIDNEY TRANSPLANT REJECTION [None]
  - OEDEMA PERIPHERAL [None]
  - RASH [None]
